FAERS Safety Report 7530358-6 (Version None)
Quarter: 2011Q2

REPORT INFORMATION
  Report Type: 
  Country: None (occurrence: None)
  Receive Date: 20110607
  Receipt Date: 20110524
  Transmission Date: 20111010
  Serious: Yes (Other)
  Sender: FDA-Public Use
  Company Number: US-UCBSA-032064

PATIENT
  Sex: Male
  Weight: 82.55 kg

DRUGS (9)
  1. CIMZIA [Suspect]
     Route: 058
  2. LANTUS [Concomitant]
     Indication: TYPE 1 DIABETES MELLITUS
     Dosage: 40 UNITS AS USED; TOTAL DAILY DOSE : 80 UNITS
     Route: 058
  3. BENTYL [Concomitant]
     Indication: MUSCLE SPASMS
     Dosage: LONG TIME
     Route: 048
  4. ENTOCORT EC [Concomitant]
     Indication: CROHN'S DISEASE
     Dosage: LONG TIME
     Route: 048
  5. ELAVIL [Concomitant]
     Indication: SLEEP DISORDER
     Dosage: AT BEDTIME
     Route: 048
     Dates: start: 20070101
  6. HUMALOG [Concomitant]
     Indication: TYPE 1 DIABETES MELLITUS
     Dosage: SLIDING SCALE VARIES
     Route: 058
  7. CIMZIA [Suspect]
     Indication: CROHN'S DISEASE
     Dosage: FORMULATION : PFS
     Route: 058
     Dates: start: 20110226
  8. LOMOTIL [Concomitant]
     Indication: DIARRHOEA
     Route: 048
     Dates: start: 20060101
  9. VERAPAMIL [Concomitant]
     Indication: HEART RATE INCREASED
     Route: 048
     Dates: start: 20100101

REACTIONS (2)
  - HAEMOGLOBIN DECREASED [None]
  - ABDOMINAL PAIN [None]
